FAERS Safety Report 9328164 (Version 1)
Quarter: 2013Q2

REPORT INFORMATION
  Report Type: Spontaneous
  Country: US (occurrence: US)
  Receive Date: 20130604
  Receipt Date: 20130604
  Transmission Date: 20140414
  Serious: Yes (Other)
  Sender: FDA-Public Use
  Company Number: US-SANOFI-AVENTIS-2012SA036461

PATIENT
  Sex: Female

DRUGS (3)
  1. LANTUS [Suspect]
     Indication: TYPE 2 DIABETES MELLITUS
     Dosage: DOSE:38 UNIT(S)
     Route: 058
     Dates: start: 201204
  2. LANTUS [Suspect]
     Indication: TYPE 2 DIABETES MELLITUS
     Dosage: DOSE:20 UNIT(S)
     Route: 058
  3. SOLOSTAR [Suspect]

REACTIONS (8)
  - Respiratory tract infection [Unknown]
  - Hypersensitivity [Unknown]
  - Dry skin [Unknown]
  - Pruritus [Unknown]
  - Nodule [Unknown]
  - Somnolence [Unknown]
  - Hyperphagia [Unknown]
  - Blood glucose decreased [Recovered/Resolved]
